FAERS Safety Report 5525785-2 (Version None)
Quarter: 2007Q4

REPORT INFORMATION
  Report Type: 
  Country: None (occurrence: None)
  Receive Date: 20071120
  Receipt Date: 20071107
  Transmission Date: 20080405
  Serious: Yes (Other)
  Sender: FDA-Public Use
  Company Number: 2007-167313-NL

PATIENT
  Age: 27 Year
  Sex: Female
  Weight: 60.3 kg

DRUGS (1)
  1. NUVARING [Suspect]
     Indication: CONTRACEPTION
     Dosage: VAGINAL, 3 WEEKS IN, 1 WEEK OU
     Route: 067
     Dates: start: 20071101, end: 20071107

REACTIONS (3)
  - DYSPHEMIA [None]
  - HEADACHE [None]
  - HYPOAESTHESIA [None]
